FAERS Safety Report 7198584-6 (Version None)
Quarter: 2010Q4

REPORT INFORMATION
  Report Type: 
  Country: None (occurrence: None)
  Receive Date: 20101227
  Receipt Date: 20101217
  Transmission Date: 20110411
  Serious: Yes (Other)
  Sender: FDA-Public Use
  Company Number: US-JNJFOC-20101207884

PATIENT
  Sex: Female
  Weight: 63.5 kg

DRUGS (12)
  1. FENTANYL-100 [Suspect]
     Indication: ANTIPHOSPHOLIPID SYNDROME
     Route: 062
  2. FENTANYL-100 [Suspect]
     Dosage: NDC 0781-7243-55
     Route: 062
  3. LEVOTHYROXINE [Concomitant]
     Indication: THYROIDECTOMY
     Route: 048
  4. TYLENOL 8 HOUR EXTENDED RELEASE PRODUCT [Concomitant]
     Indication: BREAKTHROUGH PAIN
     Dosage: 1 TO 2 AS NEEDED
     Route: 048
  5. GEMFIBROZIL [Concomitant]
     Indication: BLOOD CHOLESTEROL ABNORMAL
     Route: 048
  6. SERTRALINE HYDROCHLORIDE [Concomitant]
     Indication: DEPRESSION
     Dosage: 100 MG/TABLET/50 MG AT BED TIME
     Route: 048
  7. TEGRETOL [Concomitant]
     Indication: DEPRESSION
     Route: 048
  8. WELLBUTRIN [Concomitant]
     Indication: DEPRESSION
     Route: 048
  9. GABAPENTIN [Concomitant]
     Indication: NEURALGIA
     Route: 048
  10. CYCLOBENZAPRINE [Concomitant]
     Indication: RESTLESS LEGS SYNDROME
     Route: 048
  11. RECLAST [Concomitant]
     Indication: OSTEOPOROSIS
     Route: 042
  12. IPRATROPIUM BROMIDE [Concomitant]
     Indication: ASTHMA
     Dosage: 0.02% IN 5 ML VIAL, 1-4 TIMES DAILY
     Route: 055

REACTIONS (10)
  - ABDOMINAL PAIN UPPER [None]
  - DEPRESSION [None]
  - MALAISE [None]
  - NAUSEA [None]
  - OFF LABEL USE [None]
  - OVERDOSE [None]
  - PRODUCT QUALITY ISSUE [None]
  - THERAPEUTIC RESPONSE DECREASED [None]
  - VOMITING [None]
  - WRONG TECHNIQUE IN DRUG USAGE PROCESS [None]
